APPROVED DRUG PRODUCT: INZIRQO
Active Ingredient: HYDROCHLOROTHIAZIDE
Strength: 10MG/ML
Dosage Form/Route: FOR SUSPENSION;ORAL
Application: N219141 | Product #001
Applicant: NOVITIUM PHARMA LLC
Approved: Jan 28, 2025 | RLD: Yes | RS: Yes | Type: RX

PATENTS:
Patent 11878022 | Expires: Jan 23, 2044
Patent 11878022 | Expires: Jan 23, 2044